FAERS Safety Report 4624979-8 (Version None)
Quarter: 2005Q2

REPORT INFORMATION
  Report Type: 
  Country: None (occurrence: None)
  Receive Date: 20050401
  Receipt Date: 20050321
  Transmission Date: 20051028
  Serious: Yes (Death)
  Sender: FDA-Public Use
  Company Number: GB-SOLVAY-00205000967

PATIENT
  Age: 85 Year
  Sex: Female

DRUGS (1)
  1. COVERSYL [Suspect]
     Indication: MYOCARDIAL INFARCTION
     Dosage: DAILY DOSE: 2 MILLIGRAM(S)
     Route: 048

REACTIONS (3)
  - FAT EMBOLISM [None]
  - RENAL EMBOLISM [None]
  - RENAL FAILURE [None]
